FAERS Safety Report 9347493 (Version 2)
Quarter: 2014Q2

REPORT INFORMATION
  Report Type: Spontaneous
  Country: FR (occurrence: FR)
  Receive Date: 20130614
  Receipt Date: 20140528
  Transmission Date: 20141212
  Serious: Yes (Hospitalization)
  Sender: FDA-Public Use
  Company Number: FR-ROCHE-1236126

PATIENT
  Age: 44 Year
  Sex: Female

DRUGS (3)
  1. ROACTEMRA [Suspect]
     Indication: RHEUMATOID ARTHRITIS
     Route: 042
  2. ROACTEMRA [Suspect]
     Dosage: 24TH COURSE
     Route: 042
     Dates: start: 20130228, end: 20130228
  3. PREDNISONE [Concomitant]
     Route: 065

REACTIONS (1)
  - Peripheral ischaemia [Recovered/Resolved]
